FAERS Safety Report 23912633 (Version 1)
Quarter: 2024Q2

REPORT INFORMATION
  Report Type: Report from Study
  Country: US (occurrence: US)
  Receive Date: 20240529
  Receipt Date: 20240529
  Transmission Date: 20240715
  Serious: Yes (Other)
  Sender: FDA-Public Use
  Company Number: US-ABBVIE-5611517

PATIENT
  Age: 23 Year
  Sex: Female

DRUGS (1)
  1. HUMIRA [Suspect]
     Active Substance: ADALIMUMAB
     Indication: Product used for unknown indication
     Route: 058
     Dates: start: 20191001, end: 202401

REACTIONS (5)
  - Eclampsia [Unknown]
  - Maternal exposure during pregnancy [Unknown]
  - Gestational diabetes [Unknown]
  - Live birth [Unknown]
  - Infection [Unknown]

NARRATIVE: CASE EVENT DATE: 20231201
